FAERS Safety Report 5485158-8 (Version None)
Quarter: 2007Q4

REPORT INFORMATION
  Report Type: 
  Country: None (occurrence: None)
  Receive Date: 20071011
  Receipt Date: 20070927
  Transmission Date: 20080405
  Serious: Yes (Hospitalization)
  Sender: FDA-Public Use
  Company Number: 2007BI020696

PATIENT
  Age: 57 Year
  Sex: Female

DRUGS (1)
  1. AVONEX [Suspect]
     Indication: MULTIPLE SCLEROSIS
     Dosage: 30 UG;QW;IM
     Route: 030
     Dates: start: 20060316

REACTIONS (10)
  - ASTHENIA [None]
  - DISORIENTATION [None]
  - DYSARTHRIA [None]
  - FALL [None]
  - HALLUCINATION [None]
  - INTERVERTEBRAL DISC OPERATION [None]
  - MULTIPLE SCLEROSIS RELAPSE [None]
  - MUSCLE SPASMS [None]
  - PAIN [None]
  - VISUAL ACUITY REDUCED [None]
